FAERS Safety Report 23010325 (Version 2)
Quarter: 2023Q4

REPORT INFORMATION
  Report Type: Spontaneous
  Country: CO (occurrence: CO)
  Receive Date: 20230929
  Receipt Date: 20231109
  Transmission Date: 20240110
  Serious: No
  Sender: FDA-Public Use
  Company Number: CO-PFIZER INC-PV202300151641

PATIENT
  Age: 11 Year
  Sex: Female

DRUGS (1)
  1. GENOTROPIN [Suspect]
     Active Substance: SOMATROPIN
     Dosage: 0.8 MG
     Route: 058

REACTIONS (2)
  - Device leakage [Unknown]
  - Poor quality device used [Unknown]

NARRATIVE: CASE EVENT DATE: 20230904
